FAERS Safety Report 24237071 (Version 1)
Quarter: 2024Q3

REPORT INFORMATION
  Report Type: Spontaneous
  Country: IT (occurrence: IT)
  Receive Date: 20240822
  Receipt Date: 20240822
  Transmission Date: 20241017
  Serious: Yes (Other)
  Sender: RANBAXY
  Company Number: IT-SUN PHARMACEUTICAL INDUSTRIES LTD-2024RR-463496

PATIENT
  Age: 86 Year
  Sex: Female

DRUGS (10)
  1. GABAPENTIN [Suspect]
     Active Substance: GABAPENTIN
     Indication: Substance abuse
     Dosage: 4500 MILLIGRAM, TOTAL 1
     Route: 048
     Dates: start: 20240304, end: 20240304
  2. RAMIPRIL [Suspect]
     Active Substance: RAMIPRIL
     Indication: Substance abuse
     Dosage: 25 MILLIGRAM, TOTAL 1
     Route: 048
     Dates: start: 20240304, end: 20240304
  3. LASIX [Suspect]
     Active Substance: FUROSEMIDE
     Indication: Substance abuse
     Dosage: 125 MILLIGRAM, TOTAL 1
     Route: 048
     Dates: start: 20240304, end: 20240304
  4. SEROQUEL [Suspect]
     Active Substance: QUETIAPINE FUMARATE
     Indication: Substance abuse
     Dosage: 500 MILLIGRAM, TOTAL 1
     Route: 048
     Dates: start: 20240304, end: 20240304
  5. SITAGLIPTIN PHOSPHATE [Suspect]
     Active Substance: SITAGLIPTIN PHOSPHATE
     Indication: Substance abuse
     Dosage: 500 MILLIGRAM, TOTAL 1
     Route: 048
     Dates: start: 20240304, end: 20240304
  6. VALPROATE SODIUM [Suspect]
     Active Substance: VALPROATE SODIUM
     Indication: Substance abuse
     Dosage: 1500 MILLIGRAM, TOTAL 1
     Route: 048
     Dates: start: 20240304, end: 20240304
  7. LEVOTHYROXINE SODIUM [Suspect]
     Active Substance: LEVOTHYROXINE SODIUM
     Indication: Substance abuse
     Dosage: 125 MICROGRAM, TOTAL 1
     Route: 048
     Dates: start: 20240304, end: 20240304
  8. XANAX [Concomitant]
     Active Substance: ALPRAZOLAM
     Indication: Product used for unknown indication
     Dosage: UNK
     Route: 065
  9. BUPRENORPHINE [Concomitant]
     Active Substance: BUPRENORPHINE
     Indication: Product used for unknown indication
     Dosage: UNK
     Route: 065
  10. CITALOPRAM [Concomitant]
     Active Substance: CITALOPRAM\CITALOPRAM HYDROBROMIDE
     Indication: Product used for unknown indication
     Dosage: 5 GTT DROPS
     Route: 065

REACTIONS (3)
  - Substance abuse [Recovered/Resolved]
  - Disorientation [Recovering/Resolving]
  - Sopor [Recovered/Resolved]

NARRATIVE: CASE EVENT DATE: 20240304
